APPROVED DRUG PRODUCT: ZYVOX
Active Ingredient: LINEZOLID
Strength: 400MG **Federal Register determination that product was not discontinued or withdrawn for safety or effectiveness reasons**
Dosage Form/Route: TABLET;ORAL
Application: N021130 | Product #001
Applicant: PFIZER INC
Approved: Apr 18, 2000 | RLD: Yes | RS: No | Type: DISCN